FAERS Safety Report 7943277-8 (Version None)
Quarter: 2011Q4

REPORT INFORMATION
  Report Type: 
  Country: None (occurrence: None)
  Receive Date: 20111128
  Receipt Date: 20111118
  Transmission Date: 20120403
  Serious: Yes (Other)
  Sender: FDA-Public Use
  Company Number: PHHY2011BR102042

PATIENT
  Sex: Male
  Weight: 115 kg

DRUGS (1)
  1. DIOVAN [Suspect]
     Indication: BLOOD PRESSURE
     Dosage: 160 MG, UNK

REACTIONS (3)
  - OBESITY [None]
  - HYPERCOAGULATION [None]
  - HYPERTENSION [None]
